FAERS Safety Report 23874181 (Version 1)
Quarter: 2024Q2

REPORT INFORMATION
  Report Type: Spontaneous
  Country: IN (occurrence: IN)
  Receive Date: 20240520
  Receipt Date: 20240520
  Transmission Date: 20240715
  Serious: Yes (Other)
  Sender: FDA-Public Use
  Company Number: IN-EPICPHARMA-IN-2024EPCLIT00511

PATIENT
  Age: 18 Month
  Sex: Female

DRUGS (8)
  1. CARBOPLATIN [Suspect]
     Active Substance: CARBOPLATIN
     Indication: Atypical teratoid/rhabdoid tumour of CNS
     Route: 042
  2. IFOSFAMIDE [Suspect]
     Active Substance: IFOSFAMIDE
     Indication: Atypical teratoid/rhabdoid tumour of CNS
     Route: 042
  3. MESNA [Suspect]
     Active Substance: MESNA
     Indication: Product use in unapproved indication
     Route: 065
  4. ETOPOSIDE [Suspect]
     Active Substance: ETOPOSIDE
     Indication: Atypical teratoid/rhabdoid tumour of CNS
     Route: 042
  5. CELECOXIB [Concomitant]
     Active Substance: CELECOXIB
     Route: 048
  6. THALIDOMIDE [Concomitant]
     Active Substance: THALIDOMIDE
     Route: 048
  7. CYCLOPHOSPHAMIDE [Concomitant]
     Active Substance: CYCLOPHOSPHAMIDE
     Route: 048
  8. ETOPOSIDE [Concomitant]
     Active Substance: ETOPOSIDE
     Route: 048

REACTIONS (3)
  - Leukopenia [Unknown]
  - Neutropenia [Unknown]
  - Product use in unapproved indication [Unknown]
